FAERS Safety Report 10866773 (Version 3)
Quarter: 2015Q2

REPORT INFORMATION
  Report Type: Report from Study
  Country: JP (occurrence: JP)
  Receive Date: 20150225
  Receipt Date: 20150410
  Transmission Date: 20150821
  Serious: Yes (Other)
  Sender: FDA-Public Use
  Company Number: JP-AMGEN-JPNCT2015017412

PATIENT
  Age: 70 Year
  Sex: Female
  Weight: 59 kg

DRUGS (9)
  1. AREDIA [Concomitant]
     Active Substance: PAMIDRONATE DISODIUM
     Dosage: 90 MG, UNK
     Route: 065
     Dates: start: 20060523, end: 20060621
  2. CALCIUM LACTATE [Concomitant]
     Active Substance: CALCIUM LACTATE
     Dosage: 3 G, QD
     Route: 048
     Dates: start: 20121226, end: 20140421
  3. METHYCOBAL [Concomitant]
     Active Substance: METHYLCOBALAMIN
     Dosage: 1500 MUG, QD
     Route: 048
     Dates: start: 20120402
  4. DENOSUMAB [Suspect]
     Active Substance: DENOSUMAB
     Indication: METASTASES TO BONE
     Dosage: 120 MG, UNK
     Route: 058
     Dates: start: 20121226
  5. PACLITAXEL. [Concomitant]
     Active Substance: PACLITAXEL
     Dosage: UNK
     Route: 065
  6. ZOMETA [Concomitant]
     Active Substance: ZOLEDRONIC ACID
     Dosage: 4 MG, UNK
     Route: 065
     Dates: start: 20060729, end: 20121126
  7. BEVACIZUMAB [Concomitant]
     Active Substance: BEVACIZUMAB
     Dosage: UNK
     Route: 065
     Dates: start: 20120123
  8. EDIROL [Concomitant]
     Active Substance: ELDECALCITOL
     Dosage: 0.75 MUG, QD
     Route: 048
     Dates: start: 20121226, end: 20140421
  9. CALBLOCK [Concomitant]
     Active Substance: AZELNIDIPINE
     Dosage: 16 MG, QD
     Route: 048
     Dates: start: 20120220

REACTIONS (1)
  - Osteonecrosis of jaw [Recovered/Resolved]

NARRATIVE: CASE EVENT DATE: 20140331
